FAERS Safety Report 15559977 (Version 4)
Quarter: 2019Q1

REPORT INFORMATION
  Report Type: Report from Study
  Country: JP (occurrence: JP)
  Receive Date: 20181029
  Receipt Date: 20190311
  Transmission Date: 20190417
  Serious: Yes (Life-Threatening, Other)
  Sender: FDA-Public Use
  Company Number: PHJP2018JP018446

PATIENT
  Age: 67 Year
  Sex: Male
  Weight: 45 kg

DRUGS (3)
  1. OXAROL [Concomitant]
     Active Substance: MAXACALCITOL
     Indication: PSORIASIS
     Dosage: UNK
     Route: 061
     Dates: start: 20161228
  2. COSENTYX [Suspect]
     Active Substance: SECUKINUMAB
     Dosage: 300 MG, 4W
     Route: 058
     Dates: start: 20170214, end: 20180525
  3. COSENTYX [Suspect]
     Active Substance: SECUKINUMAB
     Indication: PSORIASIS
     Dosage: 300 MG, QW
     Route: 058
     Dates: start: 20161221, end: 20170118

REACTIONS (8)
  - Blood lactate dehydrogenase increased [Unknown]
  - Alanine aminotransferase increased [Unknown]
  - Amylase increased [Unknown]
  - Pancreatic carcinoma [Recovering/Resolving]
  - Abdominal pain [Unknown]
  - Aspartate aminotransferase increased [Unknown]
  - Gamma-glutamyltransferase increased [Unknown]
  - Blood alkaline phosphatase increased [Unknown]

NARRATIVE: CASE EVENT DATE: 20180507
